FAERS Safety Report 9093252 (Version 1)
Quarter: 2013Q1

REPORT INFORMATION
  Report Type: Spontaneous
  Country: US (occurrence: US)
  Receive Date: 20130218
  Receipt Date: 20130218
  Transmission Date: 20140127
  Serious: No
  Sender: FDA-Public Use
  Company Number: US-009507513-1302USA005784

PATIENT
  Age: 55 Year
  Sex: Female
  Weight: 57.6 kg

DRUGS (3)
  1. AZASITE [Suspect]
     Indication: INFECTION
     Dosage: 1 GTT, BID
     Route: 047
     Dates: start: 20101014, end: 20101018
  2. ENBREL [Concomitant]
     Dosage: UNK
     Dates: start: 2002
  3. METHOTREXATE [Concomitant]
     Dosage: UNK
     Dates: start: 2002

REACTIONS (3)
  - Eye pain [Recovered/Resolved]
  - Ocular hyperaemia [Not Recovered/Not Resolved]
  - Condition aggravated [Not Recovered/Not Resolved]
